FAERS Safety Report 16958405 (Version 3)
Quarter: 2022Q3

REPORT INFORMATION
  Report Type: Report from Study
  Country: FR (occurrence: FR)
  Receive Date: 20191024
  Receipt Date: 20220818
  Transmission Date: 20221027
  Serious: Yes (Death, Other)
  Sender: FDA-Public Use
  Company Number: FR-BRISTOL-MYERS SQUIBB COMPANY-BMS-2019-101045

PATIENT
  Age: 53 Year
  Sex: Female
  Weight: 51 kg

DRUGS (3)
  1. NIVOLUMAB [Suspect]
     Active Substance: NIVOLUMAB
     Indication: Squamous cell carcinoma of head and neck
     Dosage: 155 MILLIGRAM
     Route: 042
     Dates: start: 20180525, end: 20180708
  2. PACLITAXEL [Concomitant]
     Active Substance: PACLITAXEL
     Indication: Malignant neoplasm progression
     Dosage: TOTAL DOSE OF 487.2
     Route: 042
     Dates: start: 20180720, end: 20180803
  3. HERCEPTIN [Concomitant]
     Active Substance: TRASTUZUMAB
     Indication: Malignant neoplasm progression
     Dosage: TOTAL DOSE OF 264
     Route: 042
     Dates: start: 20180720, end: 20180803

REACTIONS (1)
  - Ischaemic stroke [Fatal]

NARRATIVE: CASE EVENT DATE: 20180815
